FAERS Safety Report 11044499 (Version 1)
Quarter: 2015Q2

REPORT INFORMATION
  Report Type: Spontaneous
  Country: US (occurrence: None)
  Receive Date: 20150416
  Receipt Date: 20150416
  Transmission Date: 20150821
  Serious: No
  Sender: FDA-Public Use
  Company Number: None

PATIENT

DRUGS (2)
  1. ENOXAPARIN SODIUM. [Suspect]
     Active Substance: ENOXAPARIN SODIUM
     Dosage: DOSAGE FORM: INJECTABLE   ADM ROUTE: INJECTION
  2. ENOXAPARIN SODIUM. [Suspect]
     Active Substance: ENOXAPARIN SODIUM
     Dosage: DOSAGE FORM: INJECTABLE  ADM ROUTE: INJECTION

REACTIONS (3)
  - Syringe issue [None]
  - Product quality issue [None]
  - Circumstance or information capable of leading to medication error [None]
